FAERS Safety Report 18049780 (Version 1)
Quarter: 2020Q3

REPORT INFORMATION
  Report Type: Spontaneous
  Country: CA (occurrence: CA)
  Receive Date: 20200721
  Receipt Date: 20200721
  Transmission Date: 20201103
  Serious: Yes (Life-Threatening, Hospitalization)
  Sender: FDA-Public Use
  Company Number: CA-TEVA-2020-CA-1801958

PATIENT
  Age: 72 Year
  Sex: Female
  Weight: 86 kg

DRUGS (15)
  1. METOPROLOL. [Suspect]
     Active Substance: METOPROLOL
     Dosage: 100 MILLIGRAM DAILY;
     Route: 048
  2. LACTULOSE SYRUP [Concomitant]
     Active Substance: LACTULOSE
  3. PERINDOPRIL [Concomitant]
     Active Substance: PERINDOPRIL
  4. ACETAMINOPHEN. [Concomitant]
     Active Substance: ACETAMINOPHEN
  5. ATORVASTATIN CALCIUM SANDOZ [Concomitant]
     Active Substance: ATORVASTATIN CALCIUM
  6. CLONAZEPAM. [Concomitant]
     Active Substance: CLONAZEPAM
  7. POTASSIUM CHLORIDE. [Concomitant]
     Active Substance: POTASSIUM CHLORIDE
  8. ZOPICLONE [Concomitant]
     Active Substance: ZOPICLONE
  9. ALUMINUM HYDROXIDE. [Concomitant]
     Active Substance: ALUMINUM HYDROXIDE
  10. WARFARIN [Concomitant]
     Active Substance: WARFARIN
  11. BISACODYL. [Concomitant]
     Active Substance: BISACODYL
  12. FUROSEMIDE. [Concomitant]
     Active Substance: FUROSEMIDE
  13. GABAPENTIN. [Concomitant]
     Active Substance: GABAPENTIN
  14. SENNOSIDES. [Concomitant]
     Active Substance: SENNOSIDES
  15. SIMETHICONE (DIMETHICONE) [Concomitant]
     Active Substance: DIMETHICONE

REACTIONS (1)
  - Atrioventricular block complete [Recovered/Resolved]
